FAERS Safety Report 7945781-5 (Version None)
Quarter: 2011Q4

REPORT INFORMATION
  Report Type: 
  Country: None (occurrence: None)
  Receive Date: 20111129
  Receipt Date: 20111116
  Transmission Date: 20120403
  Serious: Yes (Death)
  Sender: FDA-Public Use
  Company Number: ME-ROCHE-1014003

PATIENT
  Age: 73 Year
  Sex: Male

DRUGS (5)
  1. PRONISON [Concomitant]
  2. METHOTREXATE [Concomitant]
  3. MABTHERA [Suspect]
     Indication: RHEUMATOID ARTHRITIS
     Route: 042
     Dates: start: 20100101, end: 20111014
  4. CARDIOPIRIN [Concomitant]
  5. FAMOTIDINE [Concomitant]

REACTIONS (1)
  - PULMONARY EMBOLISM [None]
